FAERS Safety Report 20235802 (Version 1)
Quarter: 2021Q4

REPORT INFORMATION
  Report Type: Spontaneous
  Country: FR (occurrence: FR)
  Receive Date: 20211228
  Receipt Date: 20211228
  Transmission Date: 20220303
  Serious: Yes (Hospitalization, Congenital Anomaly, Other)
  Sender: FDA-Public Use
  Company Number: FR-SA-2021SA027681

PATIENT
  Age: 40 Week
  Sex: Male

DRUGS (5)
  1. LAMOTRIGINE [Suspect]
     Active Substance: LAMOTRIGINE
     Indication: Product used for unknown indication
     Dosage: UNK
     Route: 064
     Dates: start: 20070920, end: 20071005
  2. VALPROATE SODIUM [Suspect]
     Active Substance: VALPROATE SODIUM
     Indication: Product used for unknown indication
     Dosage: 2 DOSAGE FORM, ONCE A DAY (2 DF, QD (STRENGTH: 500 MG)
     Route: 064
     Dates: start: 20071005, end: 20071021
  3. VALPROATE SODIUM [Suspect]
     Active Substance: VALPROATE SODIUM
     Dosage: 750 MILLIGRAM, ONCE A DAY (750 MG, QD)
     Route: 064
     Dates: start: 20080213, end: 20080614
  4. VALPROATE SODIUM [Suspect]
     Active Substance: VALPROATE SODIUM
     Dosage: 2 DOSAGE FORM, ONCE A DAY (2 DF, QD (STRENGTH: 250 MG)
     Route: 064
     Dates: start: 20071022, end: 20080212
  5. FOLIC ACID [Concomitant]
     Active Substance: FOLIC ACID
     Indication: Product used for unknown indication
     Dosage: UNK
     Route: 065
     Dates: start: 20071022

REACTIONS (16)
  - Foetal exposure during pregnancy [Unknown]
  - Autism spectrum disorder [Unknown]
  - Bronchiolitis [Unknown]
  - Ear infection [Unknown]
  - Dysgraphia [Unknown]
  - Anodontia [Unknown]
  - Speech disorder developmental [Unknown]
  - Dysmorphism [Unknown]
  - Psychomotor retardation [Unknown]
  - Strabismus [Unknown]
  - Tooth malformation [Unknown]
  - Anger [Unknown]
  - Agitation [Unknown]
  - Astigmatism [Unknown]
  - Anxiety [Unknown]
  - Hypermetropia [Unknown]

NARRATIVE: CASE EVENT DATE: 20080614
